FAERS Safety Report 18924529 (Version 1)
Quarter: 2021Q1

REPORT INFORMATION
  Report Type: Spontaneous
  Country: US (occurrence: US)
  Receive Date: 20210222
  Receipt Date: 20210222
  Transmission Date: 20210420
  Serious: No
  Sender: FDA-Public Use
  Company Number: US-BRISTOL-MYERS SQUIBB COMPANY-BMS-2021-017530

PATIENT
  Sex: Male

DRUGS (4)
  1. DONEPEZIL. [Interacting]
     Active Substance: DONEPEZIL
     Indication: PRODUCT USED FOR UNKNOWN INDICATION
     Dosage: UNK
     Route: 065
  2. SPRYCEL [Interacting]
     Active Substance: DASATINIB
     Dosage: 70 MILLIGRAM, DAILY
     Route: 048
  3. PANTOPRAZOLE [Interacting]
     Active Substance: PANTOPRAZOLE
     Indication: PRODUCT USED FOR UNKNOWN INDICATION
     Dosage: UNK
     Route: 065
  4. SPRYCEL [Suspect]
     Active Substance: DASATINIB
     Indication: CHRONIC MYELOID LEUKAEMIA
     Dosage: HIGHER DOSE
     Route: 065

REACTIONS (2)
  - Drug interaction [Unknown]
  - Diarrhoea [Recovered/Resolved]
